FAERS Safety Report 11745227 (Version 2)
Quarter: 2016Q1

REPORT INFORMATION
  Report Type: Spontaneous
  Country: US (occurrence: US)
  Receive Date: 20151117
  Receipt Date: 20160107
  Transmission Date: 20160525
  Serious: No
  Sender: FDA-Public Use
  Company Number: US-ASTRAZENECA-2015SF08585

PATIENT
  Age: 26481 Day
  Sex: Female
  Weight: 66.7 kg

DRUGS (7)
  1. ATACAND [Suspect]
     Active Substance: CANDESARTAN CILEXETIL
     Indication: HYPERTENSION
     Dosage: CANDESARTAN CILEXETIL
     Route: 065
     Dates: start: 2015
  2. SYNTHROID [Concomitant]
     Active Substance: LEVOTHYROXINE SODIUM
     Indication: THYROID DISORDER
     Dosage: 1 HALF OF A 125 MG DAILY
     Route: 048
  3. ATACAND [Suspect]
     Active Substance: CANDESARTAN CILEXETIL
     Indication: HYPERTENSION
     Route: 048
     Dates: start: 2005
  4. ATACAND [Suspect]
     Active Substance: CANDESARTAN CILEXETIL
     Indication: HYPERTENSION
     Dosage: CANDESARTAN CILEXETIL
     Route: 065
     Dates: start: 20151229, end: 20151231
  5. DIAZEPAM. [Concomitant]
     Active Substance: DIAZEPAM
     Indication: DYSPHAGIA
     Dosage: 1 HALF OF A 2 MG THREE TIMES A DAYQ
     Route: 048
  6. DIAZEPAM. [Concomitant]
     Active Substance: DIAZEPAM
     Indication: NEURALGIA
     Dosage: 1 HALF OF A 2 MG THREE TIMES A DAYQ
     Route: 048
  7. ATACAND [Suspect]
     Active Substance: CANDESARTAN CILEXETIL
     Indication: HYPERTENSION
     Route: 048
     Dates: start: 2015, end: 2015

REACTIONS (7)
  - Intentional product misuse [Unknown]
  - Nasopharyngitis [Unknown]
  - Hypertension [Recovered/Resolved]
  - Hypersensitivity [Unknown]
  - Oral discomfort [Recovered/Resolved]
  - Product quality issue [Unknown]
  - Dysphonia [Unknown]

NARRATIVE: CASE EVENT DATE: 20151106
